FAERS Safety Report 11495333 (Version 1)
Quarter: 2015Q3

REPORT INFORMATION
  Report Type: Spontaneous
  Country: US (occurrence: NO)
  Receive Date: 20150911
  Receipt Date: 20150911
  Transmission Date: 20151125
  Serious: Yes (Other)
  Sender: FDA-Public Use
  Company Number: US-009507513-1509NOR005965

PATIENT
  Sex: Female

DRUGS (1)
  1. DESOGESTREL (+) ETHINYL ESTRADIOL [Suspect]
     Active Substance: DESOGESTREL\ETHINYL ESTRADIOL
     Indication: CONTRACEPTION
     Dosage: THE PERIOD OF LAST USE EXPOSURE: 12 TO } 4 MONTH BEFORE CONCEPTION
     Route: 048

REACTIONS (2)
  - Maternal exposure before pregnancy [Recovered/Resolved]
  - Premature labour [Unknown]
